FAERS Safety Report 7367142-2 (Version None)
Quarter: 2011Q1

REPORT INFORMATION
  Report Type: 
  Country: None (occurrence: None)
  Receive Date: 20110322
  Receipt Date: 20110308
  Transmission Date: 20110831
  Serious: Yes (Hospitalization)
  Sender: FDA-Public Use
  Company Number: NL-GENENTECH-312680

PATIENT
  Sex: Female
  Weight: 69 kg

DRUGS (31)
  1. DOXORUBICIN [Suspect]
     Dosage: 94 MG, Q2W
     Route: 042
     Dates: start: 20100628
  2. CYCLOPHOSPHAMIDE [Suspect]
     Dosage: 1500 MG, Q2W
     Route: 042
     Dates: start: 20100510
  3. COTRIM [Concomitant]
     Indication: PROPHYLAXIS
     Dosage: 960 MG, UNK
     Route: 048
     Dates: start: 20100315
  4. METOPROLOL [Concomitant]
     Indication: HYPERTENSION
     Dosage: UNK
     Route: 048
     Dates: start: 20080101, end: 20100705
  5. CYCLOPHOSPHAMIDE [Suspect]
     Dosage: 1400 MG, Q2W
     Route: 042
     Dates: start: 20100628
  6. PREDNISONE [Suspect]
     Indication: DIFFUSE LARGE B-CELL LYMPHOMA
     Dosage: 100 MG, UNK
     Route: 048
     Dates: start: 20100329
  7. G-CSF [Suspect]
     Dosage: 300 MG, UNK
     Route: 058
     Dates: start: 20100511
  8. G-CSF [Suspect]
     Dosage: 300 MG, UNK
     Route: 058
     Dates: start: 20100628
  9. PREDNISONE [Suspect]
     Dosage: 100 MG, UNK
     Route: 048
     Dates: start: 20100510
  10. G-CSF [Suspect]
     Indication: DIFFUSE LARGE B-CELL LYMPHOMA
     Dosage: 300 MG, UNK
     Route: 058
     Dates: start: 20100330
  11. KYTRIL [Concomitant]
     Indication: PRODUCT USED FOR UNKNOWN INDICATION
     Dosage: UNK
     Route: 048
     Dates: start: 20100315
  12. DOXORUBICIN [Suspect]
     Indication: DIFFUSE LARGE B-CELL LYMPHOMA
     Dosage: 100 MG, Q2W
     Route: 042
     Dates: start: 20100329
  13. PREDNISONE [Suspect]
     Dosage: 100 MG, UNK
     Route: 048
     Dates: start: 20100531
  14. MOVICOLON [Concomitant]
     Indication: PROPHYLAXIS
     Dosage: UNK
     Route: 048
     Dates: start: 20100319
  15. RITUXIMAB [Suspect]
     Dosage: 750 MG, Q2W
     Route: 042
     Dates: start: 20100531
  16. RITUXIMAB [Suspect]
     Dosage: 700 MG, Q2W
     Route: 042
     Dates: start: 20100628
  17. DOXORUBICIN [Suspect]
     Dosage: 100 MG, Q2W
     Route: 042
     Dates: start: 20100510
  18. DOXORUBICIN [Suspect]
     Dosage: 100 MG, Q2W
     Route: 042
     Dates: start: 20100531
  19. G-CSF [Suspect]
     Dosage: 300 MG, UNK
     Route: 058
     Dates: start: 20100531
  20. VALACICLOVIR [Concomitant]
     Indication: PRODUCT USED FOR UNKNOWN INDICATION
     Dosage: UNK
     Route: 048
     Dates: start: 20100315
  21. FLUCONAZOLE [Concomitant]
     Indication: CANDIDIASIS
     Dosage: UNK
     Route: 048
     Dates: start: 20100422, end: 20100705
  22. RITUXIMAB [Suspect]
     Indication: DIFFUSE LARGE B-CELL LYMPHOMA
     Dosage: 750 MG, Q2W
     Route: 042
     Dates: start: 20100329
  23. RITUXIMAB [Suspect]
     Dosage: 750 MG, Q2W
     Route: 042
     Dates: start: 20100510
  24. CYCLOPHOSPHAMIDE [Suspect]
     Indication: DIFFUSE LARGE B-CELL LYMPHOMA
     Dosage: 1500 MG, Q2W
     Route: 042
     Dates: start: 20100329
  25. CYCLOPHOSPHAMIDE [Suspect]
     Dosage: 1500 MG, Q2W
     Route: 042
     Dates: start: 20100531
  26. PREDNISONE [Suspect]
     Dosage: 100 MG, UNK
     Route: 048
     Dates: start: 20100628
  27. PANTOZOL [Concomitant]
     Indication: NAUSEA
     Dosage: 1000 MG, UNK
     Route: 048
     Dates: start: 20100315, end: 20100607
  28. LOPERAMIDE [Concomitant]
     Indication: DIARRHOEA
     Dosage: 6 MG, PRN
     Route: 048
     Dates: start: 20100704, end: 20100705
  29. ACETYLSALICYLIC ACID SRT [Concomitant]
     Indication: TRANSIENT ISCHAEMIC ATTACK
     Dosage: UNK
     Route: 048
     Dates: start: 20080101, end: 20100607
  30. PRIMPERAN TAB [Concomitant]
     Indication: NAUSEA
     Dosage: UNK
     Route: 048
     Dates: start: 20100315, end: 20100705
  31. FRAXODI [Concomitant]
     Indication: EMBOLISM ARTERIAL
     Dosage: .8 ML, UNK
     Route: 058
     Dates: start: 20100517, end: 20100705

REACTIONS (3)
  - PULMONARY EMBOLISM [None]
  - GASTROENTERITIS [None]
  - PNEUMONIA [None]
